FAERS Safety Report 9823768 (Version 3)
Quarter: 2015Q3

REPORT INFORMATION
  Report Type: Spontaneous
  Country: US (occurrence: US)
  Receive Date: 20140116
  Receipt Date: 20150810
  Transmission Date: 20151125
  Serious: No
  Sender: FDA-Public Use
  Company Number: US-GILEAD-2011-0040110

PATIENT
  Age: 49 Year
  Sex: Female

DRUGS (17)
  1. BACLOFEN. [Concomitant]
     Active Substance: BACLOFEN
  2. LETAIRIS [Suspect]
     Active Substance: AMBRISENTAN
     Indication: RHEUMATOID ARTHRITIS
  3. COLACE [Concomitant]
     Active Substance: DOCUSATE SODIUM
  4. PANTOPRAZOLE [Concomitant]
     Active Substance: PANTOPRAZOLE SODIUM
  5. CELEBREX [Concomitant]
     Active Substance: CELECOXIB
  6. VENTAVIS [Concomitant]
     Active Substance: ILOPROST
  7. ENBREL [Concomitant]
     Active Substance: ETANERCEPT
  8. ALDACTONE [Suspect]
     Active Substance: SPIRONOLACTONE
  9. ADCIRCA [Concomitant]
     Active Substance: TADALAFIL
  10. SPIRONOLACTONE. [Concomitant]
     Active Substance: SPIRONOLACTONE
  11. HYDROCODONE [Concomitant]
     Active Substance: HYDROCODONE
  12. LEXAPRO [Concomitant]
     Active Substance: ESCITALOPRAM OXALATE
  13. DANTROLENE [Concomitant]
     Active Substance: DANTROLENE
  14. FUROSEMIDE. [Concomitant]
     Active Substance: FUROSEMIDE
  15. PREDNISONE. [Concomitant]
     Active Substance: PREDNISONE
  16. LETAIRIS [Suspect]
     Active Substance: AMBRISENTAN
     Indication: PULMONARY HYPERTENSION
     Route: 048
     Dates: start: 20110521
  17. ALPRAZOLAM. [Concomitant]
     Active Substance: ALPRAZOLAM

REACTIONS (4)
  - Pulmonary hypertension [Unknown]
  - Back pain [Unknown]
  - Hypotension [Unknown]
  - Nausea [Unknown]

NARRATIVE: CASE EVENT DATE: 20110602
